FAERS Safety Report 6394128-7 (Version None)
Quarter: 2009Q4

REPORT INFORMATION
  Report Type: 
  Country: None (occurrence: None)
  Receive Date: 20091008
  Receipt Date: 20090928
  Transmission Date: 20100525
  Serious: Yes (Other)
  Sender: FDA-Public Use
  Company Number: US-PFIZER INC-2009254382

PATIENT
  Sex: Male
  Weight: 68.027 kg

DRUGS (2)
  1. VIAGRA [Suspect]
     Dosage: FREQUENCY: ONCE,
     Dates: start: 20090501
  2. PRILOSEC [Concomitant]
     Dosage: UNK

REACTIONS (3)
  - CHORIORETINOPATHY [None]
  - INTENTIONAL DRUG MISUSE [None]
  - VISION BLURRED [None]
